FAERS Safety Report 6507109-7 (Version None)
Quarter: 2009Q4

REPORT INFORMATION
  Report Type: 
  Country: None (occurrence: None)
  Receive Date: 20091221
  Receipt Date: 20091210
  Transmission Date: 20100525
  Serious: Yes (Other)
  Sender: FDA-Public Use
  Company Number: PHHY2009JP55000

PATIENT
  Age: 63 Year
  Sex: Female

DRUGS (1)
  1. ZOMETA [Suspect]
     Indication: METASTASES TO BONE
     Dosage: 2 MG DAILY
     Route: 041
     Dates: start: 20060713, end: 20090112

REACTIONS (3)
  - BONE NEOPLASM [None]
  - OSTEONECROSIS [None]
  - TOOTH LOSS [None]
